FAERS Safety Report 5446156-3 (Version None)
Quarter: 2007Q3

REPORT INFORMATION
  Report Type: 
  Country: None (occurrence: None)
  Receive Date: 20070907
  Receipt Date: 20070830
  Transmission Date: 20080115
  Serious: Yes (Death)
  Sender: FDA-Public Use
  Company Number: DE-ELI_LILLY_AND_COMPANY-DE200708006618

PATIENT
  Age: 64 Year
  Sex: Male
  Weight: 76 kg

DRUGS (3)
  1. GEMCITABINE HCL [Suspect]
     Indication: LUNG SQUAMOUS CELL CARCINOMA STAGE UNSPECIFIED
     Dosage: 1900 MG, UNK
     Route: 042
     Dates: start: 20070803
  2. GEMCITABINE HCL [Suspect]
     Dosage: 2500 MG, UNK
     Route: 042
     Dates: start: 20070817
  3. CETUXIMAB [Concomitant]
     Indication: LUNG SQUAMOUS CELL CARCINOMA STAGE UNSPECIFIED
     Dosage: 770 MG, UNK
     Route: 042
     Dates: start: 20070803

REACTIONS (4)
  - CONFUSIONAL STATE [None]
  - DEATH [None]
  - DELIRIUM [None]
  - SOMNOLENCE [None]
